FAERS Safety Report 10413352 (Version 3)
Quarter: 2014Q3

REPORT INFORMATION
  Report Type: Spontaneous
  Country: US (occurrence: US)
  Receive Date: 20140827
  Receipt Date: 20140910
  Transmission Date: 20150326
  Serious: Yes (Other)
  Sender: FDA-Public Use
  Company Number: US-TEVA-505270USA

PATIENT
  Age: 24 Year
  Sex: Female
  Weight: 68.1 kg

DRUGS (1)
  1. TAKE ACTION [Suspect]
     Active Substance: LEVONORGESTREL
     Indication: POST COITAL CONTRACEPTION
     Dosage: 1.5 MILLIGRAM DAILY;
     Route: 048
     Dates: start: 20140826, end: 20140826

REACTIONS (5)
  - Vaginal discharge [Unknown]
  - Inappropriate schedule of drug administration [Unknown]
  - Pregnancy [Unknown]
  - Exposure during pregnancy [Unknown]
  - Menstruation irregular [Unknown]

NARRATIVE: CASE EVENT DATE: 20140826
